FAERS Safety Report 23828660 (Version 1)
Quarter: 2024Q2

REPORT INFORMATION
  Report Type: Spontaneous
  Country: US (occurrence: US)
  Receive Date: 20240508
  Receipt Date: 20240508
  Transmission Date: 20240716
  Serious: Yes (Hospitalization, Other)
  Sender: FDA-Public Use
  Company Number: US-009507513-2405USA000756

PATIENT
  Age: 43 Year
  Sex: Female

DRUGS (4)
  1. DIFICID [Suspect]
     Active Substance: FIDAXOMICIN
     Indication: Clostridium difficile infection
     Dosage: UNK
     Route: 048
     Dates: start: 2018, end: 2018
  2. DIFICID [Suspect]
     Active Substance: FIDAXOMICIN
     Dosage: 200MG TWICE DAILY FOR TEN DAYS
     Route: 048
     Dates: start: 20240430
  3. VANCOMYCIN [Suspect]
     Active Substance: VANCOMYCIN
     Indication: Clostridium difficile infection
     Dosage: UNK
     Dates: start: 202309
  4. ZITHROMAX [Suspect]
     Active Substance: AZITHROMYCIN DIHYDRATE

REACTIONS (13)
  - Clostridium difficile infection [Unknown]
  - Headache [Not Recovered/Not Resolved]
  - Brain fog [Not Recovered/Not Resolved]
  - Dizziness [Not Recovered/Not Resolved]
  - Fatigue [Not Recovered/Not Resolved]
  - Nausea [Recovered/Resolved]
  - Malaise [Not Recovered/Not Resolved]
  - Feeling abnormal [Unknown]
  - Clostridium test positive [Unknown]
  - Frequent bowel movements [Unknown]
  - Feeling abnormal [Not Recovered/Not Resolved]
  - Nervousness [Not Recovered/Not Resolved]
  - Incorrect product administration duration [Unknown]

NARRATIVE: CASE EVENT DATE: 20180101
